FAERS Safety Report 6732338-7 (Version None)
Quarter: 2010Q2

REPORT INFORMATION
  Report Type: 
  Country: None (occurrence: None)
  Receive Date: 20100519
  Receipt Date: 20100512
  Transmission Date: 20101027
  Serious: Yes (Hospitalization)
  Sender: FDA-Public Use
  Company Number: JP-ROCHE-687907

PATIENT
  Sex: Female

DRUGS (11)
  1. CAPECITABINE [Suspect]
     Indication: COLON CANCER
     Dosage: DOSE DECREASED
     Route: 048
     Dates: start: 20091013, end: 20091027
  2. CAPECITABINE [Suspect]
     Route: 048
     Dates: start: 20091104, end: 20091114
  3. PYDOXAL [Concomitant]
     Route: 048
     Dates: start: 20091013, end: 20091116
  4. NORVASC [Concomitant]
     Route: 048
     Dates: end: 20091116
  5. CANDESARTAN CILEXETIL [Concomitant]
     Route: 048
     Dates: end: 20091116
  6. MAGLAX [Concomitant]
     Route: 048
     Dates: end: 20091116
  7. MARZULENE-S [Concomitant]
     Dosage: FORM: GRANULATED POWDER.
     Route: 048
     Dates: end: 20091116
  8. TOUGHMAC [Concomitant]
     Route: 048
     Dates: end: 20091116
  9. GASMOTIN [Concomitant]
     Route: 048
     Dates: end: 20091116
  10. TAKEPRON [Concomitant]
     Route: 048
     Dates: end: 20091116
  11. BROTIZOLAM [Concomitant]
     Route: 048
     Dates: end: 20091116

REACTIONS (5)
  - ABDOMINAL PAIN [None]
  - COLITIS ISCHAEMIC [None]
  - COLONIC FISTULA [None]
  - DECREASED APPETITE [None]
  - NAUSEA [None]
